FAERS Safety Report 9438941 (Version 3)
Quarter: 2013Q3

REPORT INFORMATION
  Report Type: Report from Study
  Country: CA (occurrence: CA)
  Receive Date: 20130802
  Receipt Date: 20130909
  Transmission Date: 20140515
  Serious: Yes (Other)
  Sender: FDA-Public Use
  Company Number: CA-ROCHE-1255595

PATIENT
  Sex: Female
  Weight: 59.1 kg

DRUGS (10)
  1. HERCEPTIN [Suspect]
     Indication: BREAST CANCER METASTATIC
     Route: 042
  2. PERJETA [Suspect]
     Indication: BREAST CANCER METASTATIC
     Route: 042
     Dates: start: 20130605
  3. TAXOTERE [Suspect]
     Indication: BREAST CANCER METASTATIC
     Route: 042
  4. DECADRON [Concomitant]
     Route: 048
  5. ZANTAC [Concomitant]
     Route: 048
  6. TRAMADOL [Concomitant]
  7. CLONAZEPAM [Concomitant]
  8. GABAPENTIN [Concomitant]
  9. ZOPICLONE [Concomitant]
  10. TECTA [Concomitant]
     Route: 048

REACTIONS (5)
  - Folliculitis [Unknown]
  - Ejection fraction decreased [Unknown]
  - Gastrointestinal disorder [Unknown]
  - Neuropathy peripheral [Unknown]
  - Gastrooesophageal reflux disease [Recovered/Resolved]
